FAERS Safety Report 6533927-5 (Version None)
Quarter: 2010Q1

REPORT INFORMATION
  Report Type: 
  Country: None (occurrence: None)
  Receive Date: 20100111
  Receipt Date: 20091228
  Transmission Date: 20100710
  Serious: Yes (Disabling, Other)
  Sender: FDA-Public Use
  Company Number: US-MYLANLABS-2009S1021986

PATIENT
  Age: 13 Year
  Sex: Female

DRUGS (6)
  1. METHOTREXATE [Suspect]
     Indication: EXTRA-OSSEOUS EWING'S SARCOMA
     Dosage: 12 MG/M2 X FIVE DOSES
     Route: 037
  2. CYTARABINE [Suspect]
     Indication: EXTRA-OSSEOUS EWING'S SARCOMA
     Dosage: 50 MG/M2 X FOUR DOSES
     Route: 037
  3. HYDROCORTISONE [Suspect]
     Indication: EXTRA-OSSEOUS EWING'S SARCOMA
     Dosage: 50 MG/M2 X FIVE DOSES
     Route: 037
  4. VINCRISTINE [Suspect]
     Indication: EXTRA-OSSEOUS EWING'S SARCOMA
  5. DACTINOMYCIN [Suspect]
     Indication: EXTRA-OSSEOUS EWING'S SARCOMA
  6. CYCLOPHOSPHAMIDE [Suspect]
     Indication: EXTRA-OSSEOUS EWING'S SARCOMA

REACTIONS (1)
  - MYELITIS [None]
